FAERS Safety Report 7621467-1 (Version None)
Quarter: 2011Q3

REPORT INFORMATION
  Report Type: 
  Country: None (occurrence: None)
  Receive Date: 20110719
  Receipt Date: 20110712
  Transmission Date: 20111222
  Serious: Yes (Other)
  Sender: FDA-Public Use
  Company Number: JP-PFIZER INC-2011160729

PATIENT
  Age: 85 Year
  Sex: Female

DRUGS (1)
  1. ZOSYN [Suspect]
     Dosage: 13.5 G, 3X/DAY
     Route: 041
     Dates: start: 20110506, end: 20110507

REACTIONS (2)
  - RENAL TUBULAR NECROSIS [None]
  - GENERALISED ERYTHEMA [None]
